FAERS Safety Report 4546886-1 (Version None)
Quarter: 2005Q1

REPORT INFORMATION
  Report Type: 
  Country: None (occurrence: None)
  Receive Date: 20050105
  Receipt Date: 20041217
  Transmission Date: 20050727
  Serious: Yes (Death)
  Sender: FDA-Public Use
  Company Number: JP_041205399

PATIENT
  Age: 72 Year
  Sex: Female
  Weight: 47 kg

DRUGS (14)
  1. ZYPREXA [Suspect]
     Indication: SCHIZOPHRENIA
     Dosage: 10 MG DAY
     Dates: start: 20040401
  2. DIAZEPAM [Concomitant]
  3. AKINETON [Concomitant]
  4. SILECE (FLUNITRAZEPAM EG) [Concomitant]
  5. ADALAT (NIFEDIPINE PA) [Concomitant]
  6. LASIX (FUROSEMIDE0 [Concomitant]
  7. ARTIST (CARVEDIOLOL) [Concomitant]
  8. DIOVAN (VALSARTAN0 [Concomitant]
  9. ASPIRIN [Concomitant]
  10. WARFARIN [Concomitant]
  11. ISOSORBIDE DINITRATE [Concomitant]
  12. FAMOTIDINE [Concomitant]
  13. SLOW-K (POTASSIUM CHORIDE) [Concomitant]
  14. MAGNESIUM OXIDE [Concomitant]

REACTIONS (3)
  - HEAD INJURY [None]
  - ROAD TRAFFIC ACCIDENT [None]
  - SUBDURAL HAEMATOMA [None]
